FAERS Safety Report 21915391 (Version 1)
Quarter: 2023Q1

REPORT INFORMATION
  Report Type: Spontaneous
  Country: US (occurrence: None)
  Receive Date: 20230125
  Receipt Date: 20230125
  Transmission Date: 20230418
  Serious: No
  Sender: FDA-Public Use
  Company Number: None

PATIENT
  Age: 8 Year
  Sex: Female

DRUGS (1)
  1. HUMIRA [Suspect]
     Active Substance: ADALIMUMAB
     Indication: Crohn^s disease
     Dosage: OTHER FREQUENCY : OTHER;?
     Route: 058
     Dates: start: 202301

REACTIONS (3)
  - Eye haemorrhage [None]
  - Ocular hyperaemia [None]
  - Eye discharge [None]

NARRATIVE: CASE EVENT DATE: 20230107
